FAERS Safety Report 9136967 (Version 1)
Quarter: 2013Q1

REPORT INFORMATION
  Report Type: Spontaneous
  Country: US (occurrence: US)
  Receive Date: 20130304
  Receipt Date: 20130304
  Transmission Date: 20140127
  Serious: No
  Sender: FDA-Public Use
  Company Number: US-ABBOTT-12P-163-0965133-00

PATIENT
  Sex: Male

DRUGS (6)
  1. ANDROGEL 1% [Suspect]
     Indication: BLOOD TESTOSTERONE DECREASED
     Dosage: 2 PUMPS, 1 IN 1 DAY
     Route: 061
     Dates: start: 2010, end: 2011
  2. ANDROGEL 1% [Suspect]
     Dosage: 2 PUMPS, 1 IN 1 DAY
     Route: 061
     Dates: start: 201205
  3. LIPITOR [Suspect]
     Indication: BLOOD CHOLESTEROL INCREASED
     Dates: start: 2010
  4. LIPITOR [Suspect]
  5. METFORMIN [Concomitant]
     Indication: GLUCOSE TOLERANCE IMPAIRED
  6. BENAZEPRIL [Concomitant]
     Indication: HYPERTENSION
     Dosage: NOT REPORTED

REACTIONS (4)
  - Medication residue present [Unknown]
  - Myalgia [Recovered/Resolved]
  - Blood testosterone decreased [Unknown]
  - Malaise [Recovered/Resolved]
